FAERS Safety Report 6275304-0 (Version None)
Quarter: 2009Q3

REPORT INFORMATION
  Report Type: 
  Country: None (occurrence: None)
  Receive Date: 20090721
  Receipt Date: 20090714
  Transmission Date: 20100115
  Serious: Yes (Hospitalization)
  Sender: FDA-Public Use
  Company Number: A0797624A

PATIENT
  Age: 61 Year
  Sex: Female
  Weight: 65 kg

DRUGS (1)
  1. ROSIGLITAZONE MALEATE [Suspect]
     Dosage: 4MG PER DAY
     Route: 048

REACTIONS (1)
  - TRANSIENT ISCHAEMIC ATTACK [None]
